FAERS Safety Report 7442843-6 (Version None)
Quarter: 2011Q2

REPORT INFORMATION
  Report Type: 
  Country: None (occurrence: None)
  Receive Date: 20110428
  Receipt Date: 20110330
  Transmission Date: 20111010
  Serious: No
  Sender: FDA-Public Use
  Company Number: US-BAYER-2011-029626

PATIENT
  Age: 49 Year
  Sex: Female
  Weight: 95 kg

DRUGS (5)
  1. ALEVE (CAPLET) [Suspect]
     Indication: PROCEDURAL PAIN
     Dosage: 880 MG, ONCE
     Route: 048
     Dates: start: 20110330
  2. SYNTHROID [Concomitant]
     Dosage: UNK
     Route: 048
  3. ADVIL [Concomitant]
  4. LEXAPRO [Concomitant]
  5. LUNESTA [Concomitant]
     Dosage: UNK
     Route: 048

REACTIONS (1)
  - NO ADVERSE EVENT [None]
